FAERS Safety Report 24622697 (Version 1)
Quarter: 2024Q4

REPORT INFORMATION
  Report Type: Spontaneous
  Country: US (occurrence: US)
  Receive Date: 20241115
  Receipt Date: 20241115
  Transmission Date: 20250114
  Serious: Yes (Other)
  Sender: AMGEN
  Company Number: US-AMGEN-USASP2024220445

PATIENT
  Age: 61 Year
  Sex: Male

DRUGS (5)
  1. PREDNISONE [Suspect]
     Active Substance: PREDNISONE
     Indication: Immunosuppression
     Dosage: FOR 21 DAYS
     Route: 065
  2. BASILIXIMAB [Concomitant]
     Active Substance: BASILIXIMAB
     Dosage: 20 MILLIGRAM
     Route: 040
  3. METHYLPREDNISOLONE [Concomitant]
     Active Substance: METHYLPREDNISOLONE
     Dosage: 500 MILLIGRAM
     Route: 040
  4. TACROLIMUS [Concomitant]
     Active Substance: TACROLIMUS
     Dosage: TARGET CONCENTRATION 8-9 NG/ML
     Route: 065
  5. MYCOPHENOLATE SODIUM [Concomitant]
     Active Substance: MYCOPHENOLATE SODIUM
     Dosage: 720 MILLIGRAM, BID
     Route: 065

REACTIONS (6)
  - Cytomegalovirus viraemia [Recovered/Resolved]
  - Polyomavirus viraemia [Recovered/Resolved]
  - Renal tubular injury [Recovered/Resolved]
  - Chronic allograft nephropathy [Unknown]
  - Glomerulonephritis [Unknown]
  - Renal arteriosclerosis [Unknown]
